FAERS Safety Report 7138580-8 (Version None)
Quarter: 2010Q4

REPORT INFORMATION
  Report Type: 
  Country: None (occurrence: None)
  Receive Date: 20101118
  Receipt Date: 20101110
  Transmission Date: 20110411
  Serious: Yes (Other)
  Sender: FDA-Public Use
  Company Number: 2010EU005916

PATIENT
  Age: 60 Year
  Sex: Male

DRUGS (2)
  1. PROGRAF [Suspect]
     Indication: RENAL TRANSPLANT
     Dosage: , ORAL
     Route: 048
  2. MYCOPHENOLIC ACID [Concomitant]

REACTIONS (1)
  - VIITH NERVE PARALYSIS [None]
